FAERS Safety Report 6015681-9 (Version None)
Quarter: 2008Q4

REPORT INFORMATION
  Report Type: 
  Country: None (occurrence: None)
  Receive Date: 20081222
  Receipt Date: 20081209
  Transmission Date: 20090506
  Serious: Yes (Death)
  Sender: FDA-Public Use
  Company Number: JP-PFIZER INC-2008095485

PATIENT

DRUGS (7)
  1. FARMORUBICIN [Suspect]
     Indication: OVARIAN CANCER
     Dosage: 70 MG, 1X/DAY
     Route: 042
     Dates: start: 20030320, end: 20030520
  2. TAXOL [Suspect]
     Indication: OVARIAN CANCER
     Dosage: 300 MG 1X/DAY
     Route: 042
     Dates: start: 20011010, end: 20030520
  3. TAXOTERE [Suspect]
     Indication: OVARIAN CANCER
     Dosage: 120 MG 1X/DAY
     Route: 042
     Dates: start: 20020116, end: 20020116
  4. PARAPLATIN [Suspect]
     Indication: OVARIAN CANCER
     Dosage: 450 MG, 1X/DAY
     Route: 033
     Dates: start: 20011010, end: 20030120
  5. ENDOXAN [Suspect]
     Indication: OVARIAN CANCER
     Route: 042
     Dates: start: 20030320, end: 20030520
  6. DISOPYRAMIDE [Concomitant]
     Dosage: UNK
     Route: 048
     Dates: start: 20020121
  7. LANIRAPID [Concomitant]
     Indication: SUPRAVENTRICULAR TACHYCARDIA
     Dosage: UNK
     Route: 048
     Dates: start: 20020121

REACTIONS (2)
  - LEUKAEMIA [None]
  - MYELODYSPLASTIC SYNDROME [None]
